FAERS Safety Report 7947905-2 (Version None)
Quarter: 2011Q4

REPORT INFORMATION
  Report Type: 
  Country: None (occurrence: None)
  Receive Date: 20111121
  Receipt Date: 20111115
  Transmission Date: 20120403
  Serious: Yes (Hospitalization, Other)
  Sender: FDA-Public Use
  Company Number: DSA_48186_2011

PATIENT
  Age: 61 Year
  Sex: Female

DRUGS (1)
  1. DICLOFENAC SODIUM [Suspect]
     Indication: PRODUCT USED FOR UNKNOWN INDICATION
     Dosage: DF INTRAMUSCULAR
     Route: 030

REACTIONS (11)
  - MYDRIASIS [None]
  - COMA SCALE ABNORMAL [None]
  - IMMUNOLOGY TEST ABNORMAL [None]
  - NEURON-SPECIFIC ENOLASE INCREASED [None]
  - LOSS OF CONSCIOUSNESS [None]
  - BLOOD PRESSURE DIASTOLIC DECREASED [None]
  - HEART RATE INCREASED [None]
  - CLONUS [None]
  - TRYPTASE INCREASED [None]
  - BRADYCARDIA [None]
  - METABOLIC ACIDOSIS [None]
